FAERS Safety Report 17495505 (Version 1)
Quarter: 2020Q1

REPORT INFORMATION
  Report Type: Spontaneous
  Country: US (occurrence: US)
  Receive Date: 20200304
  Receipt Date: 20200304
  Transmission Date: 20200409
  Serious: Yes (Other)
  Sender: FDA-Public Use
  Company Number: US-PFIZER INC-2020094364

PATIENT
  Age: 61 Year
  Sex: Female
  Weight: 56.7 kg

DRUGS (2)
  1. PRISTIQ EXTENDED-RELEASE [Suspect]
     Active Substance: DESVENLAFAXINE SUCCINATE
     Indication: DEPRESSION
     Dosage: 100 MG, 1X/DAY (1 TABLET AT BEDTIME)
  2. PRISTIQ EXTENDED-RELEASE [Suspect]
     Active Substance: DESVENLAFAXINE SUCCINATE
     Indication: ANXIETY

REACTIONS (7)
  - Agitation [Unknown]
  - Restlessness [Unknown]
  - Crying [Unknown]
  - Product dose omission [Unknown]
  - Insomnia [Unknown]
  - Malaise [Unknown]
  - Withdrawal syndrome [Unknown]
